FAERS Safety Report 9547028 (Version 2)
Quarter: 2014Q1

REPORT INFORMATION
  Report Type: Spontaneous
  Country: US (occurrence: None)
  Receive Date: 20130606
  Receipt Date: 20130906
  Transmission Date: 20141002
  Serious: No
  Sender: FDA-Public Use
  Company Number: 163-POMAL-13051225

PATIENT
  Age: 67 Year
  Sex: Female
  Weight: 53.89 kg

DRUGS (3)
  1. POMALYST [Suspect]
     Indication: PLASMA CELL MYELOMA
     Route: 048
     Dates: start: 20130422, end: 20130429
  2. VELCADE (BORTEZOMIB) [Concomitant]
  3. KYPROLIS (CARFILZOMIB) [Concomitant]

REACTIONS (2)
  - Abdominal discomfort [None]
  - Bone disorder [None]
